FAERS Safety Report 19465180 (Version 2)
Quarter: 2021Q3

REPORT INFORMATION
  Report Type: Report from Study
  Country: DE (occurrence: DE)
  Receive Date: 20210624
  Receipt Date: 20210909
  Transmission Date: 20211014
  Serious: Yes (Hospitalization, Other)
  Sender: FDA-Public Use
  Company Number: DE-SHIRE-DE202028839

PATIENT
  Age: 7 Year
  Sex: Male

DRUGS (4)
  1. CUVITRU [Suspect]
     Active Substance: HUMAN IMMUNOGLOBULIN G
     Indication: PRIMARY IMMUNODEFICIENCY SYNDROME
     Dosage: 4 GRAM, 2/WEEK
     Route: 058
     Dates: start: 20181029
  2. CUVITRU [Suspect]
     Active Substance: HUMAN IMMUNOGLOBULIN G
     Dosage: 3 GRAM, 1X/WEEK
     Route: 058
     Dates: start: 20200827
  3. CUVITRU [Suspect]
     Active Substance: HUMAN IMMUNOGLOBULIN G
     Dosage: 3 GRAM, 1X/WEEK
     Route: 058
     Dates: start: 20201215
  4. CUVITRU [Suspect]
     Active Substance: HUMAN IMMUNOGLOBULIN G
     Indication: IMMUNODEFICIENCY
     Dosage: 4 GRAM, 1/WEEK
     Route: 058
     Dates: start: 20181029

REACTIONS (8)
  - Impaired gastric emptying [Unknown]
  - Weight decreased [Recovering/Resolving]
  - Blood immunoglobulin G decreased [Recovering/Resolving]
  - Gastrointestinal bacterial overgrowth [Recovering/Resolving]
  - Disease complication [Unknown]
  - Vomiting [Unknown]
  - Infection [Recovered/Resolved]
  - Gastrostomy [Unknown]

NARRATIVE: CASE EVENT DATE: 20201215
